FAERS Safety Report 8850501 (Version 1)
Quarter: 2012Q4

REPORT INFORMATION
  Report Type: 
  Country: VE (occurrence: VE)
  Receive Date: 20121019
  Receipt Date: 20121019
  Transmission Date: 20130627
  Serious: Yes (Other)
  Sender: FDA-Public Use
  Company Number: VE-ROCHE-1146224

PATIENT
  Sex: Female

DRUGS (2)
  1. XOLAIR [Suspect]
     Indication: ASTHMA
     Route: 058
     Dates: start: 2011
  2. XOLAIR [Suspect]
     Route: 058

REACTIONS (2)
  - Mitral valve prolapse [Recovering/Resolving]
  - Injection site pain [Recovered/Resolved]
